FAERS Safety Report 9893185 (Version 1)
Quarter: 2014Q1

REPORT INFORMATION
  Report Type: Spontaneous
  Country: PL (occurrence: PL)
  Receive Date: 20140213
  Receipt Date: 20140213
  Transmission Date: 20141002
  Serious: Yes (Other)
  Sender: FDA-Public Use
  Company Number: PL-AMGEN-POLSP2014010319

PATIENT
  Sex: Male
  Weight: 53 kg

DRUGS (2)
  1. ENBREL [Suspect]
     Indication: ANKYLOSING SPONDYLITIS
     Dosage: 50 MG, WEEKLY
     Route: 058
     Dates: start: 201107, end: 201304
  2. MOVALIS [Concomitant]
     Indication: ANKYLOSING SPONDYLITIS
     Dosage: 15 MG, 1X/DAY
     Route: 048
     Dates: start: 201107, end: 201309

REACTIONS (1)
  - Iritis [Recovering/Resolving]
